FAERS Safety Report 5839452-9 (Version None)
Quarter: 2008Q3

REPORT INFORMATION
  Report Type: 
  Country: None (occurrence: None)
  Receive Date: 20080807
  Receipt Date: 20080723
  Transmission Date: 20090109
  Serious: Yes (Hospitalization)
  Sender: FDA-Public Use
  Company Number: 2008001739

PATIENT
  Age: 65 Year
  Sex: Male

DRUGS (3)
  1. TARCEVA (ERLOTINIB) (TABLET) [Suspect]
     Indication: LUNG NEOPLASM MALIGNANT
     Dosage: (150 MG,QD), ORAL
     Route: 048
     Dates: start: 20071201
  2. B2 ACONISTS [Concomitant]
  3. CORTICOSTEROIDS NOS (CORTICOSTEROID NOS) [Concomitant]

REACTIONS (3)
  - ANAEMIA [None]
  - LEISHMANIASIS [None]
  - LEUKOPENIA [None]
